FAERS Safety Report 7602654-5 (Version None)
Quarter: 2011Q3

REPORT INFORMATION
  Report Type: 
  Country: None (occurrence: None)
  Receive Date: 20110712
  Receipt Date: 20110629
  Transmission Date: 20111222
  Serious: Yes (Hospitalization)
  Sender: FDA-Public Use
  Company Number: US-ELI_LILLY_AND_COMPANY-US201107000090

PATIENT

DRUGS (1)
  1. ZYPREXA [Suspect]
     Dosage: 6.5 MG, QD

REACTIONS (5)
  - CARDIAC FAILURE CONGESTIVE [None]
  - RENAL IMPAIRMENT [None]
  - DYSPNOEA [None]
  - RENAL DISORDER [None]
  - PULMONARY OEDEMA [None]
